FAERS Safety Report 8964107 (Version 3)
Quarter: 2013Q1

REPORT INFORMATION
  Report Type: Spontaneous
  Country: JP (occurrence: JP)
  Receive Date: 20121213
  Receipt Date: 20130122
  Transmission Date: 20140127
  Serious: Yes (Other)
  Sender: FDA-Public Use
  Company Number: JP-GLAXOSMITHKLINE-B0849720A

PATIENT
  Age: 80 Year
  Sex: Female

DRUGS (9)
  1. GABAPENTIN ENACARBIL [Suspect]
     Indication: RESTLESS LEGS SYNDROME
     Dosage: 300MG PER DAY
     Route: 048
     Dates: start: 20120724, end: 20120807
  2. GABAPENTIN ENACARBIL [Suspect]
     Indication: RESTLESS LEGS SYNDROME
     Route: 048
     Dates: start: 20120904, end: 20121002
  3. GABAPENTIN ENACARBIL [Suspect]
     Indication: RESTLESS LEGS SYNDROME
     Route: 065
     Dates: start: 20121016
  4. GASTER [Suspect]
     Indication: GASTRITIS
     Dosage: 5MG TWICE PER DAY
     Route: 048
     Dates: start: 20100701
  5. LYRICA [Suspect]
     Indication: FIBROMYALGIA
     Dosage: 25MG TWICE PER DAY
     Route: 048
     Dates: start: 20101216, end: 20121016
  6. MOBIC [Concomitant]
     Dates: start: 20100701
  7. PREDONINE [Concomitant]
     Dates: start: 20100701
  8. DEPAS [Concomitant]
     Dates: start: 20100701
  9. GABAPEN [Concomitant]
     Dates: end: 20120904

REACTIONS (3)
  - Burning sensation [Unknown]
  - Pain [Unknown]
  - Intentional drug misuse [Unknown]
